FAERS Safety Report 26153660 (Version 1)
Quarter: 2025Q4

REPORT INFORMATION
  Report Type: Spontaneous
  Country: CN (occurrence: CN)
  Receive Date: 20251214
  Receipt Date: 20251214
  Transmission Date: 20260118
  Serious: Yes (Hospitalization, Other)
  Sender: JOHNSON AND JOHNSON
  Company Number: CN-BAYER-2025A162032

PATIENT
  Age: 54 Year
  Sex: Female
  Weight: 58 kg

DRUGS (26)
  1. XARELTO [Suspect]
     Active Substance: RIVAROXABAN
     Indication: Thrombosis prophylaxis
     Dosage: 10 MG, QD
     Route: 048
     Dates: start: 20250418
  2. DARATUMUMAB [Suspect]
     Active Substance: DARATUMUMAB
     Indication: Plasma cell myeloma refractory
     Dosage: 928 MG, QD
     Route: 041
     Dates: start: 20250418, end: 20250419
  3. DARATUMUMAB [Suspect]
     Active Substance: DARATUMUMAB
     Dosage: 928 MG, QD
     Route: 041
     Dates: start: 20250425, end: 20250425
  4. DEXAMETHASONE SODIUM PHOSPHATE [Suspect]
     Active Substance: DEXAMETHASONE SODIUM PHOSPHATE
     Indication: Plasma cell myeloma refractory
     Dosage: 40 MG, QD
     Route: 041
     Dates: start: 20250418, end: 20250419
  5. DEXAMETHASONE SODIUM PHOSPHATE [Suspect]
     Active Substance: DEXAMETHASONE SODIUM PHOSPHATE
     Dosage: 20 MG, QD
     Route: 041
     Dates: start: 20250425, end: 20250425
  6. POMALIDOMIDE [Suspect]
     Active Substance: POMALIDOMIDE
     Indication: Plasma cell myeloma refractory
     Dosage: 4 MG, QD
     Route: 048
     Dates: start: 20250418, end: 20250428
  7. SITAGLIPTIN PHOSPHATE [Concomitant]
     Active Substance: SITAGLIPTIN PHOSPHATE
     Indication: Blood glucose abnormal
     Dosage: 100 MG, QD
     Route: 048
     Dates: start: 2022
  8. SODIUM BICARBONATE [Concomitant]
     Active Substance: SODIUM BICARBONATE
     Indication: Infection prophylaxis
     Dosage: 0.5 G, QD, GARGLE
     Dates: start: 20250417, end: 20250425
  9. SODIUM BICARBONATE [Concomitant]
     Active Substance: SODIUM BICARBONATE
     Indication: Symptomatic treatment
     Dosage: 1 G, TID
     Route: 048
     Dates: start: 20250418, end: 20250425
  10. GRANULOCYTE COLONY-STIMULATING FACTOR NOS [Concomitant]
     Active Substance: GRANULOCYTE COLONY-STIMULATING FACTOR NOS
     Indication: White blood cell disorder
     Dosage: 0.2 MG, ONCE
     Route: 058
     Dates: start: 20250418, end: 20250418
  11. GRANULOCYTE COLONY-STIMULATING FACTOR NOS [Concomitant]
     Active Substance: GRANULOCYTE COLONY-STIMULATING FACTOR NOS
     Indication: Symptomatic treatment
     Dosage: 0.3 MG, QD
     Route: 058
     Dates: start: 20250429, end: 2025
  12. METHYLPREDNISOLONE SODIUM SUCCINATE [Concomitant]
     Active Substance: METHYLPREDNISOLONE SODIUM SUCCINATE
     Indication: Infusion related reaction
     Dosage: 40 MG, ONCE
     Dates: start: 20250418, end: 20250418
  13. PROMETHAZINE HYDROCHLORIDE [Concomitant]
     Active Substance: PROMETHAZINE HYDROCHLORIDE
     Indication: Prophylaxis
     Dosage: 25 MG, QD
     Route: 048
     Dates: start: 20250418, end: 20250420
  14. ACETAMINOPHEN [Concomitant]
     Active Substance: ACETAMINOPHEN
     Indication: Prophylaxis
     Dosage: 0.5 G, QD
     Route: 048
     Dates: start: 20250418, end: 20250420
  15. OMEPRAZOLE [Concomitant]
     Active Substance: OMEPRAZOLE
     Indication: Gastrointestinal disorder prophylaxis
     Dosage: 20 MG, QD
     Route: 048
     Dates: start: 20250418, end: 20250420
  16. OMEPRAZOLE [Concomitant]
     Active Substance: OMEPRAZOLE
     Dosage: 20 MG, QD
     Route: 048
     Dates: start: 20250423, end: 20250425
  17. ACYCLOVIR [Concomitant]
     Active Substance: ACYCLOVIR
     Indication: Infection prophylaxis
     Dosage: 0.2 G, TID
     Route: 048
     Dates: start: 20250418
  18. CALCIUM CARBONATE\CHOLECALCIFEROL [Concomitant]
     Active Substance: CALCIUM CARBONATE\CHOLECALCIFEROL
     Indication: Osteoporosis prophylaxis
     Dosage: 300 MG, BID
     Route: 048
     Dates: start: 20250418
  19. CALCITRIOL [Concomitant]
     Active Substance: CALCITRIOL
     Indication: Prophylaxis
     Dosage: 0.00025 MG, QD
     Route: 048
     Dates: start: 20250418
  20. SULFAMETHOXAZOLE [Concomitant]
     Active Substance: SULFAMETHOXAZOLE
     Indication: Infection prophylaxis
     Dosage: 96 G, BID(WEDNESDAY/SATURDAY)
     Route: 048
     Dates: start: 20250418
  21. FLUCONAZOLE [Concomitant]
     Active Substance: FLUCONAZOLE
     Indication: Antifungal prophylaxis
     Dosage: 50 MG, QD
     Route: 048
     Dates: start: 20250418
  22. LEUCOGEN [Concomitant]
     Active Substance: LEUCOGEN
     Indication: Neutrophil count decreased
     Dosage: 20 MG, TID
     Route: 048
     Dates: start: 20250428
  23. LEUCOGEN [Concomitant]
     Active Substance: LEUCOGEN
     Indication: White blood cell count decreased
  24. CARBAZOCHROME SODIUM SULFONATE [Concomitant]
     Active Substance: CARBAZOCHROME SODIUM SULFONATE
     Indication: Haemostasis
     Dosage: 60 MG, QD
     Route: 041
     Dates: start: 20250429, end: 2025
  25. HUMAN IMMUNOGLOBULIN G [Concomitant]
     Active Substance: HUMAN IMMUNOGLOBULIN G
     Indication: Immune system disorder
     Dosage: 2.5 G, QD
     Route: 041
     Dates: start: 20250501, end: 2025
  26. Romiplostim N01 [Concomitant]
     Indication: Megakaryocytes abnormal
     Dosage: 0.25 MG, QD
     Route: 058
     Dates: start: 20250502, end: 2025

REACTIONS (9)
  - Platelet count decreased [Unknown]
  - Respiratory syncytial virus infection [Recovered/Resolved]
  - Febrile infection [Recovered/Resolved]
  - Syncope [Recovering/Resolving]
  - Productive cough [Recovered/Resolved]
  - Skin abrasion [Recovering/Resolving]
  - Fall [Recovering/Resolving]
  - Dizziness [Recovering/Resolving]
  - Asthenia [Recovering/Resolving]

NARRATIVE: CASE EVENT DATE: 20250101
